FAERS Safety Report 24002304 (Version 1)
Quarter: 2024Q2

REPORT INFORMATION
  Report Type: Spontaneous
  Country: US (occurrence: None)
  Receive Date: 20240622
  Receipt Date: 20240622
  Transmission Date: 20240716
  Serious: No
  Sender: FDA-Public Use
  Company Number: 2024A139767

PATIENT
  Age: 63 Year
  Sex: Female

DRUGS (1)
  1. TRUQAP [Suspect]
     Active Substance: CAPIVASERTIB
     Route: 048

REACTIONS (9)
  - Dry mouth [Unknown]
  - Thirst [Unknown]
  - Dehydration [Unknown]
  - Asthenia [Unknown]
  - Ageusia [Unknown]
  - Weight decreased [Unknown]
  - Oropharyngeal pain [Unknown]
  - Asthenia [Unknown]
  - Diarrhoea [Unknown]

NARRATIVE: CASE EVENT DATE: 20240609
